FAERS Safety Report 11102475 (Version 2)
Quarter: 2015Q2

REPORT INFORMATION
  Report Type: Spontaneous
  Country: US (occurrence: None)
  Receive Date: 20150507
  Receipt Date: 20150527
  Transmission Date: 20150821
  Serious: Yes (Other)
  Sender: FDA-Public Use
  Company Number: 2015SMT00066

PATIENT
  Age: 84 Year
  Sex: Male
  Weight: 83.9 kg

DRUGS (13)
  1. REGRANEX [Suspect]
     Active Substance: BECAPLERMIN
     Indication: WOUND
     Dosage: 1 DOSAGE UNITS, 1X/DAY, TOPICAL
     Route: 061
     Dates: start: 201503, end: 2015
  2. GENTAMICIN CREAM [Concomitant]
  3. SYNTHROID [Concomitant]
     Active Substance: LEVOTHYROXINE SODIUM
  4. METOPROLOL [Concomitant]
     Active Substance: METOPROLOL
  5. ASPIRIN. [Concomitant]
     Active Substance: ASPIRIN
  6. LIDOCAINE AND PRILOCAINE CREAM [Concomitant]
     Active Substance: LIDOCAINE\PRILOCAINE
  7. ATORVASTATIN [Concomitant]
     Active Substance: ATORVASTATIN
  8. UNSPECIFIED VITAMINS [Concomitant]
  9. METFORMIN [Concomitant]
     Active Substance: METFORMIN HYDROCHLORIDE
  10. TERAZOSIN [Concomitant]
     Active Substance: TERAZOSIN\TERAZOSIN HYDROCHLORIDE
  11. GLIPIZIDE. [Concomitant]
     Active Substance: GLIPIZIDE
  12. CLOPIDOGREL [Concomitant]
     Active Substance: CLOPIDOGREL BISULFATE
  13. GLYCERYL TRINITRATE [Concomitant]
     Active Substance: NITROGLYCERIN

REACTIONS (5)
  - Application site erythema [None]
  - Localised infection [None]
  - Osteomyelitis [None]
  - Application site pain [None]
  - Middle insomnia [None]

NARRATIVE: CASE EVENT DATE: 201503
